FAERS Safety Report 23299066 (Version 1)
Quarter: 2023Q4

REPORT INFORMATION
  Report Type: Spontaneous
  Country: US (occurrence: US)
  Receive Date: 20231215
  Receipt Date: 20231215
  Transmission Date: 20240110
  Serious: No
  Sender: FDA-Public Use
  Company Number: US-ENDO PHARMACEUTICALS INC-2022-006725

PATIENT
  Age: 55 Year
  Sex: Male
  Weight: 139 kg

DRUGS (5)
  1. XIAFLEX [Suspect]
     Active Substance: COLLAGENASE CLOSTRIDIUM HISTOLYTICUM
     Indication: Peyronie^s disease
     Dosage: 1 ML, UNKNOWN (CYCLE ONE, INJECTION ONE)
     Route: 026
     Dates: start: 20221202
  2. XIAFLEX [Suspect]
     Active Substance: COLLAGENASE CLOSTRIDIUM HISTOLYTICUM
     Dosage: 1 ML, UNKNOWN (CYCLE ONE, INJECTION TWO)
     Route: 026
     Dates: start: 20221209
  3. CIALIS [Concomitant]
     Active Substance: TADALAFIL
     Indication: Product used for unknown indication
     Dosage: 20 MG (ON DEMAND), UNKNOWN
     Route: 048
  4. SINGULAIR [Concomitant]
     Active Substance: MONTELUKAST SODIUM
     Indication: Product used for unknown indication
     Dosage: 10 MG, UNKNOWN
     Route: 048
  5. MULTIVITAMINS                      /00116001/ [Concomitant]
     Indication: Product used for unknown indication
     Dosage: UNK UNKNOWN, DAILY
     Route: 065

REACTIONS (6)
  - Balanoposthitis [Unknown]
  - Dermatitis allergic [Unknown]
  - Penile oedema [Unknown]
  - Penile contusion [Unknown]
  - Inappropriate schedule of product administration [Unknown]
  - Off label use [Unknown]

NARRATIVE: CASE EVENT DATE: 20221202
